FAERS Safety Report 5190226-4 (Version None)
Quarter: 2006Q4

REPORT INFORMATION
  Report Type: 
  Country: None (occurrence: None)
  Receive Date: 20061222
  Receipt Date: 20060731
  Transmission Date: 20070319
  Serious: No
  Sender: FDA-Public Use
  Company Number: US-AMGEN-KDL188270

PATIENT
  Sex: Female

DRUGS (4)
  1. ARANESP [Suspect]
     Indication: MYELODYSPLASTIC SYNDROME
     Route: 065
     Dates: start: 20060626, end: 20060713
  2. VITAMIN B-12 [Concomitant]
     Route: 065
  3. CODEINE [Concomitant]
     Route: 065
  4. PREMARIN [Concomitant]

REACTIONS (3)
  - FATIGUE [None]
  - HEADACHE [None]
  - MALAISE [None]
